FAERS Safety Report 20635794 (Version 1)
Quarter: 2022Q1

REPORT INFORMATION
  Report Type: Spontaneous
  Country: US (occurrence: None)
  Receive Date: 20220324
  Receipt Date: 20220324
  Transmission Date: 20220424
  Serious: Yes (Hospitalization)
  Sender: FDA-Public Use
  Company Number: None

PATIENT
  Age: 56 Year
  Sex: Female
  Weight: 108.86 kg

DRUGS (3)
  1. LISINOPRIL [Suspect]
     Active Substance: LISINOPRIL
     Indication: Hypertension
     Dosage: 1 PILL DAILY BY MOUTH??GIVE BEST ESTIMATE OF DURATION :?REMAIN SWOLLEN (1) DAY AFTER?
     Route: 048
     Dates: start: 20220218, end: 20220222
  2. METFORMIN HCL TAB [Concomitant]
  3. AMLODIPINE BESYLATE 5MG TABS [Concomitant]

REACTIONS (1)
  - Swollen tongue [None]

NARRATIVE: CASE EVENT DATE: 20220221
